FAERS Safety Report 20059135 (Version 2)
Quarter: 2021Q4

REPORT INFORMATION
  Report Type: Other
  Country: US (occurrence: None)
  Receive Date: 20211111
  Receipt Date: 20211126
  Transmission Date: 20220304
  Serious: No
  Sender: FDA-Public Use
  Company Number: US-ROCHE-2717352

PATIENT
  Age: 58 Year
  Sex: Female
  Weight: 118.49 kg

DRUGS (5)
  1. OCREVUS [Suspect]
     Active Substance: OCRELIZUMAB
     Indication: Secondary progressive multiple sclerosis
     Route: 042
     Dates: start: 20180925, end: 20210729
  2. SOLU-MEDROL [Concomitant]
     Active Substance: METHYLPREDNISOLONE SODIUM SUCCINATE
  3. BENADRYL [Concomitant]
     Active Substance: DIPHENHYDRAMINE HYDROCHLORIDE
     Route: 048
  4. PEPCID [Concomitant]
     Active Substance: FAMOTIDINE
  5. TYLENOL [Concomitant]
     Active Substance: ACETAMINOPHEN

REACTIONS (8)
  - Urinary tract infection [Not Recovered/Not Resolved]
  - Off label use [Unknown]
  - Infusion related reaction [Unknown]
  - Hypoaesthesia [Recovering/Resolving]
  - Pruritus [Recovering/Resolving]
  - Acne [Recovering/Resolving]
  - Urticaria [Unknown]
  - COVID-19 [Unknown]

NARRATIVE: CASE EVENT DATE: 20201118
